FAERS Safety Report 9554065 (Version 2)
Quarter: 2013Q3

REPORT INFORMATION
  Report Type: Spontaneous
  Country: SE (occurrence: SE)
  Receive Date: 20130925
  Receipt Date: 20130925
  Transmission Date: 20140515
  Serious: Yes (Congenital Anomaly)
  Sender: FDA-Public Use
  Company Number: SE-ELI_LILLY_AND_COMPANY-US_021189508

PATIENT
  Sex: 0

DRUGS (2)
  1. HUMULIN [Suspect]
     Dosage: UNK, UNKNOWN
     Route: 064
  2. HUMULIN [Suspect]
     Dosage: UNK, UNKNOWN
     Route: 064

REACTIONS (1)
  - Hypospadias [Unknown]
